FAERS Safety Report 5739306-2 (Version None)
Quarter: 2008Q2

REPORT INFORMATION
  Report Type: 
  Country: None (occurrence: None)
  Receive Date: 20080512
  Receipt Date: 20080512
  Transmission Date: 20081010
  Serious: Yes (Hospitalization)
  Sender: FDA-Public Use
  Company Number: None

PATIENT
  Sex: Male
  Weight: 92.2 kg

DRUGS (3)
  1. CYTARABINE [Suspect]
     Dosage: 100 MG
     Dates: start: 20080422
  2. DAUNORUBICIN HCL [Suspect]
     Dosage: 90 MG
  3. ETOPOSIDE [Suspect]
     Dosage: 100 MG

REACTIONS (4)
  - FATIGUE [None]
  - FEBRILE NEUTROPENIA [None]
  - HEADACHE [None]
  - PAIN [None]
